FAERS Safety Report 23950497 (Version 1)
Quarter: 2024Q2

REPORT INFORMATION
  Report Type: Spontaneous
  Country: US (occurrence: US)
  Receive Date: 20240607
  Receipt Date: 20240607
  Transmission Date: 20240716
  Serious: Yes (Other)
  Sender: FDA-Public Use
  Company Number: US-PFIZER INC-PV202400073268

PATIENT
  Age: 62 Year
  Sex: Female

DRUGS (1)
  1. VYNDAMAX [Suspect]
     Active Substance: TAFAMIDIS
     Dosage: UNK

REACTIONS (7)
  - Polyneuropathy [Not Recovered/Not Resolved]
  - Disease progression [Not Recovered/Not Resolved]
  - Orthopnoea [Unknown]
  - Dyspnoea exertional [Unknown]
  - Oedema [Unknown]
  - Neuralgia [Unknown]
  - Gait disturbance [Unknown]
